FAERS Safety Report 11549349 (Version 1)
Quarter: 2015Q3

REPORT INFORMATION
  Report Type: Spontaneous
  Country: US (occurrence: US)
  Receive Date: 20150924
  Receipt Date: 20150924
  Transmission Date: 20151125
  Serious: No
  Sender: FDA-Public Use
  Company Number: US-INCYTE CORPORATION-2015IN003086

PATIENT
  Sex: Male
  Weight: 92.97 kg

DRUGS (12)
  1. VITAMIN B12 [Concomitant]
     Active Substance: CYANOCOBALAMIN
  2. COENZYME Q10 [Concomitant]
     Active Substance: UBIDECARENONE
  3. MULTIVITAMIN                       /07504101/ [Concomitant]
     Active Substance: VITAMINS
  4. LEVOTHYROXINE. [Concomitant]
     Active Substance: LEVOTHYROXINE
  5. IBUPROFEN. [Concomitant]
     Active Substance: IBUPROFEN
  6. NITROSTAT [Concomitant]
     Active Substance: NITROGLYCERIN
  7. PANTOPRAZOLE [Concomitant]
     Active Substance: PANTOPRAZOLE SODIUM
  8. ISOSORBIDE. [Concomitant]
     Active Substance: ISOSORBIDE
  9. VITAMIN D                          /00107901/ [Concomitant]
     Active Substance: ERGOCALCIFEROL
  10. JAKAFI [Suspect]
     Active Substance: RUXOLITINIB
     Indication: MYELOFIBROSIS
     Dosage: 25 MG, BID
     Route: 048
  11. JAKAFI [Suspect]
     Active Substance: RUXOLITINIB
     Dosage: 10 MG, BID
     Route: 048
  12. BENAZEPRIL [Concomitant]
     Active Substance: BENAZEPRIL HYDROCHLORIDE

REACTIONS (3)
  - Skin disorder [Recovering/Resolving]
  - Haemoglobin decreased [Recovering/Resolving]
  - Contusion [Recovering/Resolving]
